FAERS Safety Report 8130574-9 (Version None)
Quarter: 2012Q1

REPORT INFORMATION
  Report Type: 
  Country: None (occurrence: None)
  Receive Date: 20120211
  Receipt Date: 20120206
  Transmission Date: 20120608
  Serious: Yes (Death)
  Sender: FDA-Public Use
  Company Number: US-VERTEX PHARMACEUTICALS INC.-AE-2011-005474

PATIENT
  Sex: Male

DRUGS (15)
  1. PEGASYS [Concomitant]
     Indication: HEPATITIS C
  2. LISINOPRIL [Concomitant]
     Route: 048
  3. AMITRIPTYLINE HCL [Concomitant]
     Route: 048
  4. MULTI-VITAMINS [Concomitant]
     Route: 048
  5. LIVER SOURCE [Concomitant]
  6. INCIVEK [Suspect]
     Indication: HEPATITIS C
     Dates: start: 20110923
  7. NORCO [Concomitant]
     Indication: ARTHRALGIA
  8. CLONAZEPAM [Concomitant]
     Route: 048
  9. IBUPROFEN [Concomitant]
     Route: 048
  10. ASPIRIN [Concomitant]
     Route: 048
  11. FISH OIL [Concomitant]
     Route: 048
  12. GLUCOSAMINE CHONDROITIN [Concomitant]
     Route: 048
  13. RIBAVIRIN [Concomitant]
     Indication: HEPATITIS C
  14. SYNTHROID [Concomitant]
     Route: 048
  15. FOLIC ACID [Concomitant]
     Indication: ANAEMIA

REACTIONS (1)
  - CARDIO-RESPIRATORY ARREST [None]
